APPROVED DRUG PRODUCT: GANCICLOVIR SODIUM
Active Ingredient: GANCICLOVIR SODIUM
Strength: EQ 500MG BASE/VIAL
Dosage Form/Route: INJECTABLE;INJECTION
Application: A207645 | Product #001 | TE Code: AP
Applicant: PHARMASCIENCE INC
Approved: Dec 8, 2017 | RLD: No | RS: Yes | Type: RX